FAERS Safety Report 4470027-2 (Version None)
Quarter: 2004Q3

REPORT INFORMATION
  Report Type: 
  Country: None (occurrence: None)
  Receive Date: 20040920
  Receipt Date: 20040816
  Transmission Date: 20050211
  Serious: No
  Sender: FDA-Public Use
  Company Number: PHEH2004US08915

PATIENT
  Age: 67 Year
  Sex: Female

DRUGS (6)
  1. ZOMETA [Suspect]
     Indication: GAUCHER'S DISEASE
     Dosage: UNK, ONCE/SINGLE, INTRAVENOUS
     Route: 042
     Dates: start: 20040811
  2. CEREZYME (IMIGLUCERASE) [Concomitant]
  3. PRILOSEC [Concomitant]
  4. VIOXX [Concomitant]
  5. LITHOBID [Concomitant]
  6. ESTROGENS CONJUGATED W/PROGESTERONE [Concomitant]

REACTIONS (4)
  - COUGH [None]
  - OESOPHAGEAL SPASM [None]
  - URTICARIA [None]
  - WHEEZING [None]
